FAERS Safety Report 6909017-6 (Version None)
Quarter: 2010Q3

REPORT INFORMATION
  Report Type: 
  Country: None (occurrence: None)
  Receive Date: 20100805
  Receipt Date: 20100730
  Transmission Date: 20110219
  Serious: Yes (Death, Other)
  Sender: FDA-Public Use
  Company Number: US-CELGENEUS-163-21880-10062057

PATIENT
  Sex: Male
  Weight: 98 kg

DRUGS (32)
  1. REVLIMID [Suspect]
     Indication: MULTIPLE MYELOMA
     Route: 048
     Dates: start: 20061101
  2. REVLIMID [Suspect]
     Route: 048
     Dates: start: 20070601
  3. REVLIMID [Suspect]
     Route: 048
     Dates: start: 20080101
  4. REVLIMID [Suspect]
     Route: 048
     Dates: start: 20080701
  5. REVLIMID [Suspect]
     Route: 048
     Dates: start: 20100301
  6. REVLIMID [Suspect]
     Route: 048
     Dates: start: 20100501
  7. CC-4047 [Concomitant]
     Indication: MULTIPLE MYELOMA
     Route: 048
     Dates: start: 20100504, end: 20100524
  8. ACYCLOVIR [Concomitant]
     Indication: PRODUCT USED FOR UNKNOWN INDICATION
     Route: 048
  9. SYNTHROID [Concomitant]
     Indication: PRODUCT USED FOR UNKNOWN INDICATION
     Route: 048
  10. LEVAQUIN [Concomitant]
     Indication: PRODUCT USED FOR UNKNOWN INDICATION
     Route: 048
  11. FLOMAX [Concomitant]
     Indication: PRODUCT USED FOR UNKNOWN INDICATION
     Route: 048
  12. LYRICA [Concomitant]
     Indication: PRODUCT USED FOR UNKNOWN INDICATION
     Route: 048
  13. DEPO-TESTOSTERONE [Concomitant]
     Indication: PRODUCT USED FOR UNKNOWN INDICATION
     Dosage: 200MG/ML
     Route: 030
  14. EPOGEN SOLN [Concomitant]
     Indication: PRODUCT USED FOR UNKNOWN INDICATION
     Dosage: 40,000 UNITS
     Route: 058
  15. DURAGESIC-100 [Concomitant]
     Indication: PRODUCT USED FOR UNKNOWN INDICATION
     Route: 062
  16. ATIVAN [Concomitant]
     Indication: NAUSEA
     Route: 048
  17. ATIVAN [Concomitant]
     Indication: ANXIETY
     Dosage: 2MG/ML
     Route: 051
  18. ATIVAN [Concomitant]
     Indication: AGITATION
  19. AMBIEN [Concomitant]
     Indication: INSOMNIA
     Dosage: 1-2
     Route: 048
  20. PROTONIX [Concomitant]
     Indication: PRODUCT USED FOR UNKNOWN INDICATION
     Route: 048
  21. TYLENOL PM ES [Concomitant]
     Indication: INSOMNIA
     Dosage: 1-2
     Route: 048
  22. NYSTATIN [Concomitant]
     Indication: PRODUCT USED FOR UNKNOWN INDICATION
     Dosage: 10 CCS 100000 UNIT/ML
     Route: 048
  23. ZOFRAN [Concomitant]
     Indication: NAUSEA
     Dosage: 4MG/2ML
     Route: 051
  24. ZOFRAN [Concomitant]
     Indication: VOMITING
  25. FUROSEMIDE [Interacting]
     Route: 051
  26. CYCLOPHOSPHAMIDE [Concomitant]
     Indication: PRODUCT USED FOR UNKNOWN INDICATION
     Dosage: 1 G/M2
     Route: 051
     Dates: start: 20100525
  27. MESNA [Concomitant]
     Indication: PRODUCT USED FOR UNKNOWN INDICATION
     Dosage: 1.0 G/M2
     Route: 051
     Dates: start: 20100525
  28. DEXAMETHASONE [Concomitant]
     Indication: PRODUCT USED FOR UNKNOWN INDICATION
     Route: 051
     Dates: start: 20100525
  29. ARA-C [Concomitant]
     Indication: PRODUCT USED FOR UNKNOWN INDICATION
     Dosage: 1 G/M2
     Route: 065
     Dates: start: 20100525
  30. CISPLATIN [Concomitant]
     Indication: PRODUCT USED FOR UNKNOWN INDICATION
     Route: 051
     Dates: start: 20100525
  31. ETOPOSIDE [Concomitant]
     Indication: PRODUCT USED FOR UNKNOWN INDICATION
     Dosage: 0.5 G/M2
     Route: 065
     Dates: start: 20100525
  32. VELCADE [Concomitant]
     Indication: PRODUCT USED FOR UNKNOWN INDICATION
     Route: 065
     Dates: start: 20100525

REACTIONS (9)
  - ATRIAL FIBRILLATION [None]
  - BLOOD BILIRUBIN INCREASED [None]
  - DEATH [None]
  - ENTEROCOCCAL BACTERAEMIA [None]
  - FLUID OVERLOAD [None]
  - FUNGAL INFECTION [None]
  - HEPATIC FAILURE [None]
  - PNEUMONIA [None]
  - RENAL FAILURE [None]
